FAERS Safety Report 7027512-9 (Version None)
Quarter: 2010Q4

REPORT INFORMATION
  Report Type: 
  Country: None (occurrence: None)
  Receive Date: 20101004
  Receipt Date: 20100920
  Transmission Date: 20110411
  Serious: Yes (Hospitalization)
  Sender: FDA-Public Use
  Company Number: PHHY2010NL52453

PATIENT
  Sex: Male

DRUGS (3)
  1. ZOMETA [Suspect]
     Dosage: 4 MG/5 ML
     Dates: start: 20100628
  2. ZOMETA [Suspect]
     Dosage: 4 MG/5 ML
     Dates: start: 20100809
  3. ZOMETA [Suspect]
     Dosage: 4 MG/5 ML
     Dates: start: 20100920

REACTIONS (6)
  - DECREASED APPETITE [None]
  - FLUID RETENTION [None]
  - MALAISE [None]
  - PNEUMONIA [None]
  - PYREXIA [None]
  - URINARY TRACT INFECTION [None]
